FAERS Safety Report 7915253-2 (Version None)
Quarter: 2011Q4

REPORT INFORMATION
  Report Type: 
  Country: None (occurrence: None)
  Receive Date: 20111115
  Receipt Date: 20111109
  Transmission Date: 20120403
  Serious: Yes (Hospitalization)
  Sender: FDA-Public Use
  Company Number: US-B.I. PHARMACEUTICALS,INC./RIDGEFIELD-2011-BP-23924BP

PATIENT
  Sex: Female
  Weight: 79.38 kg

DRUGS (34)
  1. POLYETHYLENE GLYCOL [Concomitant]
     Dosage: 17 G
     Route: 048
  2. ZAFIRLUKAST [Concomitant]
     Dosage: 40 MG
     Route: 048
  3. ZOLPIDEM [Concomitant]
     Route: 048
  4. CALCIUM CARBONATE [Concomitant]
     Dosage: 3000 MG
     Route: 048
  5. DEXLANSOPRAZOLE [Concomitant]
     Dosage: 60 MG
     Route: 048
  6. DICLOFENAC TOPICAL [Concomitant]
     Indication: ARTHRALGIA
  7. LEVOTHYROXINE SODIUM [Concomitant]
     Dosage: 75 MCG
     Route: 048
  8. SERTRALINE HYDROCHLORIDE [Concomitant]
     Dosage: 100 MG
     Route: 048
  9. TRAMADOL HCL [Concomitant]
     Indication: BACK PAIN
     Route: 048
  10. TRAMADOL HCL [Concomitant]
     Indication: MUSCULOSKELETAL PAIN
  11. BENZONATATE [Concomitant]
     Indication: COUGH
     Route: 048
  12. GUAIFENESIN AND DEXTROMETHORPHAN HBR [Concomitant]
     Indication: NASAL CONGESTION
  13. NEBIVOLOL HCL [Concomitant]
     Dosage: 10 MG
     Route: 048
  14. NYSTATIN/DIPENHYDRAMINE/HYDROCORTISONE [Concomitant]
     Indication: ORAL PAIN
     Route: 048
  15. ROSUVASTATIN [Concomitant]
     Dosage: 20 MG
     Route: 048
  16. PRADAXA [Suspect]
     Indication: ATRIAL FIBRILLATION
     Dosage: 300 MG
     Dates: start: 20101208, end: 20110929
  17. GUAIFENESIN AND DEXTROMETHORPHAN HBR [Concomitant]
     Indication: COUGH
     Route: 048
  18. ERGOCALCIFEROL [Concomitant]
     Route: 048
  19. FEXOFENADINE [Concomitant]
     Dosage: 180 MG
     Route: 048
  20. OMEGA -3 POLYUNSATURATED FATTY ACIDS [Concomitant]
     Indication: ORAL PAIN
     Dosage: 4000 MG
     Route: 048
  21. PROMETHAZINE [Concomitant]
     Indication: NAUSEA
     Route: 048
  22. CYCLOBENZAPRINE [Concomitant]
     Indication: BACK PAIN
     Route: 048
  23. FLUTICASONE NASAL [Concomitant]
     Route: 045
  24. FLUTICASONE PROPIONATE/SALMETEROL [Concomitant]
     Route: 055
  25. PHENAZOPYRIDINE HCL TAB [Concomitant]
     Indication: DYSURIA
     Route: 048
  26. ACETAMINOPHEN AND HYDROCODONE BITARTRATE [Concomitant]
     Indication: PAIN
     Route: 048
  27. CHLORTHALIDONE [Concomitant]
     Dosage: 25 MG
     Route: 048
  28. FERROUS SULFATE TAB [Concomitant]
     Dosage: 650 MG
     Route: 048
  29. CPAPA [Concomitant]
  30. ONDANSETRON [Concomitant]
     Indication: NAUSEA
     Route: 048
  31. POLYCARBOPHIL [Concomitant]
     Dosage: 1250 MG
     Route: 048
  32. POTASSIUM CHLORIDE [Concomitant]
     Dosage: 120 MEQ
     Route: 048
  33. PREDNISONE [Concomitant]
     Dosage: 5 MG
     Route: 048
  34. ALBUTEROL [Concomitant]
     Indication: WHEEZING
     Route: 055

REACTIONS (2)
  - HAEMATOCHEZIA [None]
  - LOWER GASTROINTESTINAL HAEMORRHAGE [None]
